FAERS Safety Report 5156842-0 (Version None)
Quarter: 2006Q4

REPORT INFORMATION
  Report Type: 
  Country: None (occurrence: None)
  Receive Date: 20061115
  Receipt Date: 20061106
  Transmission Date: 20070319
  Serious: Yes (Hospitalization)
  Sender: FDA-Public Use
  Company Number: 2006111316

PATIENT
  Age: 46 Year
  Sex: Female
  Weight: 45 kg

DRUGS (5)
  1. ZOLOFT [Suspect]
     Indication: DEPRESSED MOOD
     Dosage: 25 MG (25 MG, 1 IN 1 D), ORAL
     Route: 048
     Dates: start: 20060722
  2. ZOLOFT [Suspect]
     Indication: DYSPNOEA
     Dosage: 25 MG (25 MG, 1 IN 1 D), ORAL
     Route: 048
     Dates: start: 20060722
  3. ALPRAZOLAM [Concomitant]
  4. DOGMATYL (SULIPIRIDE) [Concomitant]
  5. DIAZEPAM [Concomitant]

REACTIONS (3)
  - DIARRHOEA [None]
  - EOSINOPHIL COUNT INCREASED [None]
  - HYPERSENSITIVITY [None]
